FAERS Safety Report 7181484-5 (Version None)
Quarter: 2010Q4

REPORT INFORMATION
  Report Type: 
  Country: None (occurrence: None)
  Receive Date: 20101221
  Receipt Date: 20100424
  Transmission Date: 20110411
  Serious: Yes (Other)
  Sender: FDA-Public Use
  Company Number: US-AMGEN-QUU408395

PATIENT

DRUGS (2)
  1. ENBREL [Suspect]
     Indication: RHEUMATOID ARTHRITIS
     Dosage: 25 MG, 2 TIMES/WK
     Route: 058
     Dates: start: 20060101
  2. METHOTREXATE [Concomitant]
     Dosage: UNK UNK, QWK

REACTIONS (12)
  - AGEUSIA [None]
  - CATARACT [None]
  - CHILLS [None]
  - CYST [None]
  - DECREASED APPETITE [None]
  - DEPRESSED MOOD [None]
  - DYSPNOEA [None]
  - EYE IRRITATION [None]
  - FATIGUE [None]
  - INFECTION [None]
  - PYREXIA [None]
  - RHINORRHOEA [None]
